FAERS Safety Report 17588211 (Version 1)
Quarter: 2020Q1

REPORT INFORMATION
  Report Type: Report from Study
  Country: US (occurrence: US)
  Receive Date: 20200326
  Receipt Date: 20200326
  Transmission Date: 20200409
  Serious: Yes (Other)
  Sender: FDA-Public Use
  Company Number: US-TEVA-2019-US-1118190

PATIENT
  Age: 57 Year
  Sex: Female

DRUGS (16)
  1. AMITIZA [Concomitant]
     Active Substance: LUBIPROSTONE
  2. CLONAZEPAM. [Concomitant]
     Active Substance: CLONAZEPAM
  3. ESTRADIOL. [Concomitant]
     Active Substance: ESTRADIOL
  4. FUROSEMIDE. [Concomitant]
     Active Substance: FUROSEMIDE
  5. LORAZEPAM. [Concomitant]
     Active Substance: LORAZEPAM
  6. RANEXA [Concomitant]
     Active Substance: RANOLAZINE
  7. SPIRONOLACT [Concomitant]
     Active Substance: SPIRONOLACTONE
  8. METOPROLOL SUCCINATE. [Concomitant]
     Active Substance: METOPROLOL SUCCINATE
     Dosage: 25 MILLIGRAM DAILY; 1 TABLET PER DAY
     Route: 065
  9. TIZANIDINE. [Concomitant]
     Active Substance: TIZANIDINE
  10. BUPROPION. [Concomitant]
     Active Substance: BUPROPION
  11. ESOMEPRA MAG [Concomitant]
  12. NORTRIPTYLIN [Concomitant]
     Active Substance: NORTRIPTYLINE
  13. RIVASTIGMINE. [Concomitant]
     Active Substance: RIVASTIGMINE
  14. COPAXONE [Suspect]
     Active Substance: GLATIRAMER ACETATE
     Indication: MULTIPLE SCLEROSIS
     Dosage: 20 MILLIGRAM DAILY;
     Route: 058
     Dates: start: 20190629
  15. AMPYRA [Concomitant]
     Active Substance: DALFAMPRIDINE
  16. GABAPENTIN. [Concomitant]
     Active Substance: GABAPENTIN

REACTIONS (5)
  - Mobility decreased [Unknown]
  - Restless legs syndrome [Not Recovered/Not Resolved]
  - Shoulder operation [Unknown]
  - Fall [Not Recovered/Not Resolved]
  - Multiple sclerosis relapse [Not Recovered/Not Resolved]

NARRATIVE: CASE EVENT DATE: 20200204
